FAERS Safety Report 7519923-X (Version None)
Quarter: 2011Q2

REPORT INFORMATION
  Report Type: 
  Country: None (occurrence: None)
  Receive Date: 20110602
  Receipt Date: 20110523
  Transmission Date: 20111010
  Serious: Yes (Hospitalization)
  Sender: FDA-Public Use
  Company Number: US-ACTELION-A-US2011-47892

PATIENT

DRUGS (4)
  1. REVATIO [Concomitant]
  2. COUMADIN [Concomitant]
  3. SOTALOL HCL [Concomitant]
  4. TRACLEER [Suspect]
     Indication: PULMONARY ARTERIAL HYPERTENSION
     Dosage: UNK
     Route: 048
     Dates: start: 20081107

REACTIONS (1)
  - PYREXIA [None]
